FAERS Safety Report 11311508 (Version 6)
Quarter: 2015Q4

REPORT INFORMATION
  Report Type: Report from Study
  Country: US (occurrence: US)
  Receive Date: 20150727
  Receipt Date: 20151202
  Transmission Date: 20160304
  Serious: Yes (Other)
  Sender: FDA-Public Use
  Company Number: PHEH2015US011795

PATIENT
  Age: 24 Year
  Sex: Female

DRUGS (4)
  1. AFINITOR [Suspect]
     Active Substance: EVEROLIMUS
     Dosage: 7.5 MG, QD
     Route: 048
     Dates: start: 20150810, end: 20151023
  2. SINGULAIR [Concomitant]
     Active Substance: MONTELUKAST SODIUM
     Indication: PRODUCT USED FOR UNKNOWN INDICATION
     Route: 065
  3. AFINITOR [Suspect]
     Active Substance: EVEROLIMUS
     Indication: ANGIOMYOLIPOMA
     Dosage: 5 MG, QD
     Route: 048
     Dates: start: 20150612
  4. PRILOSEC [Concomitant]
     Active Substance: OMEPRAZOLE MAGNESIUM
     Indication: PRODUCT USED FOR UNKNOWN INDICATION
     Route: 065

REACTIONS (39)
  - Pyuria [Unknown]
  - Dysmenorrhoea [Unknown]
  - Abdominal pain [Unknown]
  - Urine abnormality [Unknown]
  - Pruritus [Unknown]
  - Blood glucose increased [Unknown]
  - Vomiting [Unknown]
  - Pneumonitis [Unknown]
  - Abdominal distension [Unknown]
  - Contusion [Unknown]
  - Peripheral swelling [Unknown]
  - Depression [Unknown]
  - Flatulence [Unknown]
  - Blood pressure abnormal [Unknown]
  - Menstruation delayed [Unknown]
  - Pain [Unknown]
  - Seasonal allergy [Unknown]
  - Urinary tract infection [Unknown]
  - Loss of consciousness [Unknown]
  - Limb injury [Unknown]
  - Renal pain [Unknown]
  - Abnormal behaviour [Unknown]
  - Joint swelling [Unknown]
  - Sinusitis [Unknown]
  - Drug ineffective [Unknown]
  - Nasal dryness [Unknown]
  - Gingival pain [Unknown]
  - Epistaxis [Unknown]
  - Eating disorder [Unknown]
  - Fatigue [Unknown]
  - Pain in extremity [Unknown]
  - Micturition urgency [Unknown]
  - Abdominal pain lower [Unknown]
  - Menstruation irregular [Unknown]
  - Nausea [Unknown]
  - Seizure [Unknown]
  - Hallucination [Unknown]
  - Amnesia [Unknown]
  - Constipation [Unknown]

NARRATIVE: CASE EVENT DATE: 20150616
